FAERS Safety Report 16908040 (Version 7)
Quarter: 2021Q2

REPORT INFORMATION
  Report Type: Report from Study
  Country: None (occurrence: IL)
  Receive Date: 20191011
  Receipt Date: 20210616
  Transmission Date: 20210716
  Serious: Yes (Hospitalization, Other)
  Sender: FDA-Public Use
  Company Number: IL-ABBVIE-19K-082-2956727-00

PATIENT
  Age: 86 Year
  Sex: Female
  Weight: 60 kg

DRUGS (18)
  1. FLUARIX NOS [Concomitant]
     Active Substance: INFLUENZA VIRUS VACCINE
     Indication: ANTIVIRAL PROPHYLAXIS
     Dates: start: 20191111, end: 20191111
  2. VENCLEXTA [Suspect]
     Active Substance: VENETOCLAX
     Route: 048
     Dates: start: 20190521, end: 20190528
  3. VENCLEXTA [Suspect]
     Active Substance: VENETOCLAX
     Dosage: RAMP?UP
     Route: 048
     Dates: start: 20190529, end: 20190604
  4. ESCITALOPRAM [Concomitant]
     Active Substance: ESCITALOPRAM OXALATE
     Indication: DEPRESSION
     Dates: start: 20150218
  5. NEXIUM [Concomitant]
     Active Substance: ESOMEPRAZOLE MAGNESIUM
     Indication: PROPHYLAXIS
     Dates: start: 20180828
  6. COVID?19 VACCINE [Concomitant]
     Dosage: PFIZER
     Route: 030
     Dates: start: 20210122, end: 20210122
  7. FUSID [Concomitant]
     Indication: HYPERTENSION
     Dates: start: 20100610
  8. VENCLEXTA [Suspect]
     Active Substance: VENETOCLAX
     Route: 048
     Dates: start: 20190615, end: 20191111
  9. VENCLEXTA [Suspect]
     Active Substance: VENETOCLAX
     Route: 048
     Dates: start: 20191213
  10. ELIQUIS [Concomitant]
     Active Substance: APIXABAN
     Indication: ANTICOAGULANT THERAPY
     Route: 065
     Dates: start: 20190815
  11. LOSARTAN. [Concomitant]
     Active Substance: LOSARTAN
     Indication: HYPERTENSION
     Dates: start: 20160905
  12. FOSALAN [Concomitant]
     Active Substance: ALENDRONATE SODIUM
     Indication: OSTEOPOROSIS
     Dates: start: 20120515
  13. PRADAXA [Concomitant]
     Active Substance: DABIGATRAN ETEXILATE MESYLATE
     Indication: ANTICOAGULANT THERAPY
     Dates: start: 20190404, end: 20190814
  14. ALLORIL [Concomitant]
     Active Substance: ALLOPURINOL
     Indication: PROPHYLAXIS
     Dates: start: 20190515
  15. VENCLEXTA [Suspect]
     Active Substance: VENETOCLAX
     Dosage: RAMP?UP
     Route: 048
     Dates: start: 20190605, end: 20190614
  16. VENCLEXTA [Suspect]
     Active Substance: VENETOCLAX
     Indication: CHRONIC LYMPHOCYTIC LEUKAEMIA
     Route: 048
     Dates: start: 20190513, end: 20190520
  17. COVID?19 VACCINE [Concomitant]
     Indication: COVID-19 PROPHYLAXIS
     Dosage: PFIZER
     Route: 030
     Dates: start: 20210101, end: 20210101
  18. INFLUVAC TETRA [Concomitant]
     Active Substance: INFLUENZA VIRUS VACCINE QUADRIVALENT TYPE A+B
     Indication: ANTIVIRAL PROPHYLAXIS
     Dates: start: 20200924, end: 20200924

REACTIONS (9)
  - Dermal cyst [Not Recovered/Not Resolved]
  - Hypersensitivity pneumonitis [Not Recovered/Not Resolved]
  - Anaemia [Recovered/Resolved]
  - Herpes zoster [Recovered/Resolved]
  - Stasis dermatitis [Not Recovered/Not Resolved]
  - Hip fracture [Recovered/Resolved]
  - Fall [Recovered/Resolved]
  - Oedema peripheral [Not Recovered/Not Resolved]
  - Femur fracture [Recovered/Resolved]

NARRATIVE: CASE EVENT DATE: 2019
